FAERS Safety Report 7946056 (Version 4)
Quarter: 2013Q1

REPORT INFORMATION
  Report Type: Report from Study
  Country: ES (occurrence: ES)
  Receive Date: 20110516
  Receipt Date: 20130320
  Transmission Date: 20140127
  Serious: Yes (Death, Hospitalization)
  Sender: FDA-Public Use
  Company Number: ES-ALEXION-A201100670

PATIENT
  Age: 58 Year
  Sex: Male

DRUGS (4)
  1. SOLIRIS [Suspect]
     Indication: PAROXYSMAL NOCTURNAL HAEMOGLOBINURIA
     Dosage: 600 MG, QW
     Route: 042
     Dates: start: 20080205, end: 200803
  2. SOLIRIS [Suspect]
     Dosage: 900 MG, Q2W
     Route: 042
     Dates: start: 200803
  3. TACROLIMUS [Concomitant]
  4. ANTIBIOTICS [Concomitant]

REACTIONS (3)
  - B-cell lymphoma [Fatal]
  - Abdominal sepsis [Fatal]
  - Intestinal obstruction [Fatal]
